FAERS Safety Report 7944814-X (Version None)
Quarter: 2011Q4

REPORT INFORMATION
  Report Type: 
  Country: None (occurrence: None)
  Receive Date: 20111122
  Receipt Date: 20110818
  Transmission Date: 20120403
  Serious: No
  Sender: FDA-Public Use
  Company Number: PHHY2011US55272

PATIENT
  Age: 36 Year
  Sex: Female
  Weight: 90.7 kg

DRUGS (1)
  1. GILENYA [Suspect]
     Indication: MULTIPLE SCLEROSIS
     Dosage: 0.5 MG, EVERY DAY, ORAL, 0.5 MG, EVERY DAY, ORAL
     Route: 048
     Dates: end: 20110606

REACTIONS (9)
  - DECREASED APPETITE [None]
  - DISCOMFORT [None]
  - FATIGUE [None]
  - NAUSEA [None]
  - BONE PAIN [None]
  - MUSCULOSKELETAL STIFFNESS [None]
  - ASTHENIA [None]
  - PARAESTHESIA [None]
  - MUSCLE SPASMS [None]
